FAERS Safety Report 24288355 (Version 1)
Quarter: 2024Q3

REPORT INFORMATION
  Report Type: Spontaneous
  Country: CN (occurrence: CN)
  Receive Date: 20240905
  Receipt Date: 20240905
  Transmission Date: 20241016
  Serious: Yes (Hospitalization)
  Sender: ABBVIE
  Company Number: CN-ABBVIE-5905444

PATIENT
  Age: 31 Year
  Sex: Male
  Weight: 68 kg

DRUGS (3)
  1. VENETOCLAX [Suspect]
     Active Substance: VENETOCLAX
     Indication: Neoplasm prophylaxis
     Route: 048
     Dates: start: 20240815, end: 20240822
  2. SODIUM CHLORIDE [Concomitant]
     Active Substance: SODIUM CHLORIDE
     Indication: Vehicle solution use
     Dosage: 500 ML
     Route: 041
     Dates: start: 20240815, end: 20240818
  3. CYTARABINE [Suspect]
     Active Substance: CYTARABINE
     Indication: Neoplasm prophylaxis
     Dosage: 3500 MILLIGRAM
     Route: 041
     Dates: start: 20240815, end: 20240818

REACTIONS (1)
  - Myelosuppression [Unknown]

NARRATIVE: CASE EVENT DATE: 20240827
